FAERS Safety Report 21354714 (Version 2)
Quarter: 2022Q4

REPORT INFORMATION
  Report Type: Spontaneous
  Country: JP (occurrence: JP)
  Receive Date: 20220920
  Receipt Date: 20221003
  Transmission Date: 20230112
  Serious: Yes (Other)
  Sender: FDA-Public Use
  Company Number: JP-BAXTER-2022BAX019847

PATIENT
  Age: 45 Year
  Sex: Male

DRUGS (3)
  1. SUPRANE [Suspect]
     Active Substance: DESFLURANE
     Indication: Maintenance of anaesthesia
     Dosage: 3.5 %
     Route: 065
  2. PROPOFOL [Suspect]
     Active Substance: PROPOFOL
     Indication: Induction of anaesthesia
     Dosage: 2 MG/KG, FOLLOWED BY TRACHEAL INTUBATION
     Route: 065
  3. REMIFENTANIL [Suspect]
     Active Substance: REMIFENTANIL
     Indication: Maintenance of anaesthesia
     Dosage: 0.25 UG/KG/MIN, INFUSION
     Route: 042

REACTIONS (3)
  - Cardiac arrest [Unknown]
  - Bradycardia [Unknown]
  - Trigemino-cardiac reflex [Unknown]
